FAERS Safety Report 9601164 (Version 2)
Quarter: 2013Q4

REPORT INFORMATION
  Report Type: Spontaneous
  Country: US (occurrence: US)
  Receive Date: 20131004
  Receipt Date: 20131004
  Transmission Date: 20140711
  Serious: No
  Sender: FDA-Public Use
  Company Number: US-AMGEN-USASP2013035438

PATIENT
  Age: 55 Year
  Sex: Female
  Weight: 88.89 kg

DRUGS (17)
  1. ENBREL [Suspect]
     Indication: PRODUCT USED FOR UNKNOWN INDICATION
     Dosage: 50 MG, QWK
     Route: 058
     Dates: start: 20130320, end: 20130612
  2. EFFEXOR XR [Concomitant]
     Dosage: 150 MG 1 CAPSULE , EVERY DAY
     Route: 048
  3. DETROL LA [Concomitant]
     Dosage: 4 MG 1 CAPSULE EVERY DAY
     Route: 048
  4. PREDNISONE [Concomitant]
     Dosage: 10 MG, BID
     Route: 048
  5. DILAUDID [Concomitant]
     Dosage: 2 MG 1 TABLET QHS
     Route: 048
  6. SYNTHROID [Concomitant]
     Dosage: 100 MU 1 TABLET EVERY DAY
     Route: 048
  7. TRICOR                             /00090101/ [Concomitant]
     Dosage: 145 MG 1 TABLET DAILY
     Route: 048
  8. DIOVAN HCT [Concomitant]
     Dosage: 80/12.5 MG 1 TABLET EVERY DAY
     Route: 048
  9. ALLEGRA [Concomitant]
     Dosage: 180 MG 1 TABLET EVERY DAY
     Route: 048
  10. GABAPENTIN [Concomitant]
     Dosage: 300 MG 1 CAPSULE IN AM, AT NOON AND 2 CAPSULES (600 MG) PO AT NIGHT
     Route: 048
  11. TOPROL [Concomitant]
     Dosage: 100 MG 1 TABLET EVERY DAY
     Route: 048
  12. HYDROCODONE W/HOMATROPINE [Concomitant]
     Dosage: 5-1.5/5
  13. PROAIR HFA [Concomitant]
     Dosage: AER
  14. ZITHROMAX [Concomitant]
     Dosage: UNK
  15. Z-PAK [Concomitant]
     Dosage: UNK
  16. TOBRAMYCIN SULFATE [Concomitant]
     Dosage: 0.3 %, QID 2 DROPS
     Route: 047
  17. AUGMENTIN                          /00756801/ [Concomitant]
     Dosage: 875MG-125 1 TABLET EVERY 12 HOURS
     Route: 048

REACTIONS (14)
  - Respiratory tract congestion [Unknown]
  - Arthritis [Unknown]
  - Hot flush [Unknown]
  - Muscle spasms [Unknown]
  - Essential hypertension [Unknown]
  - Rhinitis allergic [Unknown]
  - Hypothyroidism [Unknown]
  - Hyperlipidaemia [Unknown]
  - Fatigue [Unknown]
  - Night sweats [Unknown]
  - Arthropathy [Unknown]
  - Myalgia [Unknown]
  - Contusion [Unknown]
  - Sinusitis [Unknown]
